FAERS Safety Report 4569602-6 (Version None)
Quarter: 2005Q1

REPORT INFORMATION
  Report Type: 
  Country: None (occurrence: None)
  Receive Date: 20050201
  Receipt Date: 20050125
  Transmission Date: 20050727
  Serious: Yes (Life-Threatening, Hospitalization)
  Sender: FDA-Public Use
  Company Number: 200510175GDS

PATIENT
  Age: 76 Year
  Sex: Female

DRUGS (4)
  1. ASPIRIN [Suspect]
     Dosage: 100 MG, QD, ORAL
     Route: 048
     Dates: start: 20040623, end: 20040627
  2. PLAVIX [Suspect]
     Dosage: 75 MG, QD, ORAL
     Route: 048
     Dates: start: 20040617, end: 20040627
  3. CLEXANE 60 MG (ENOXAPARIN SODIUM) [Suspect]
     Dosage: 60 MG, QD, SUBCUTANEOUS
     Route: 058
     Dates: start: 20040617, end: 20040623
  4. FRAXIPARINE (NADROPARIN CALCIUM) [Suspect]
     Dosage: 0.6 ML, TOTAL DAILY, SUBCUTANEOUS
     Route: 058
     Dates: start: 20040622, end: 20040627

REACTIONS (1)
  - HAEMOPTYSIS [None]
